FAERS Safety Report 20155421 (Version 1)
Quarter: 2021Q4

REPORT INFORMATION
  Report Type: Other
  Country: KR (occurrence: None)
  Receive Date: 20211207
  Receipt Date: 20211207
  Transmission Date: 20220303
  Serious: Yes (Other)
  Sender: FDA-Public Use
  Company Number: KR-ROCHE-2970288

PATIENT

DRUGS (5)
  1. TRASTUZUMAB [Suspect]
     Active Substance: TRASTUZUMAB
     Indication: Squamous cell carcinoma of head and neck
     Route: 041
  2. TRASTUZUMAB [Suspect]
     Active Substance: TRASTUZUMAB
     Route: 041
  3. EVORPACEPT [Suspect]
     Active Substance: EVORPACEPT
     Indication: Squamous cell carcinoma of head and neck
     Route: 065
  4. RAMUCIRUMAB [Suspect]
     Active Substance: RAMUCIRUMAB
     Indication: Squamous cell carcinoma of head and neck
     Dosage: ON DAY 1 AND 15
     Route: 065
  5. PACLITAXEL [Suspect]
     Active Substance: PACLITAXEL
     Indication: Squamous cell carcinoma of head and neck
     Dosage: ON DAY 1, 8 AND 15
     Route: 065

REACTIONS (14)
  - Peripheral sensory neuropathy [Unknown]
  - Neutrophil count decreased [Unknown]
  - Fatigue [Unknown]
  - Anaemia [Unknown]
  - Hypertension [Unknown]
  - Aspartate aminotransferase increased [Unknown]
  - Diverticulitis [Unknown]
  - Dysphagia [Unknown]
  - Hypophosphataemia [Unknown]
  - Platelet count decreased [Unknown]
  - Hydronephrosis [Unknown]
  - Lymphocyte count decreased [Unknown]
  - Non-cardiac chest pain [Unknown]
  - Urinary tract infection [Unknown]
